FAERS Safety Report 25705133 (Version 1)
Quarter: 2025Q3

REPORT INFORMATION
  Report Type: Spontaneous
  Country: EU (occurrence: EU)
  Receive Date: 20250820
  Receipt Date: 20250820
  Transmission Date: 20251020
  Serious: Yes (Other)
  Sender: AUROBINDO
  Company Number: EU-MLMSERVICE-20250804-PI601318-00202-1

PATIENT
  Age: 84 Year

DRUGS (16)
  1. MEROPENEM [Suspect]
     Active Substance: MEROPENEM
     Indication: Clostridial infection
     Route: 065
  2. MEROPENEM [Suspect]
     Active Substance: MEROPENEM
     Indication: Proteus infection
  3. MEROPENEM [Suspect]
     Active Substance: MEROPENEM
     Indication: Enterococcal infection
  4. MEROPENEM [Suspect]
     Active Substance: MEROPENEM
     Indication: Pseudomonas infection
  5. MEROPENEM [Suspect]
     Active Substance: MEROPENEM
     Indication: Urinary tract infection bacterial
  6. MEROPENEM [Suspect]
     Active Substance: MEROPENEM
     Indication: Superinfection bacterial
  7. MEROPENEM [Suspect]
     Active Substance: MEROPENEM
     Indication: Meningitis bacterial
  8. LINEZOLID [Suspect]
     Active Substance: LINEZOLID
     Indication: Clostridial infection
     Route: 065
  9. LINEZOLID [Suspect]
     Active Substance: LINEZOLID
     Indication: Proteus infection
  10. LINEZOLID [Suspect]
     Active Substance: LINEZOLID
     Indication: Enterococcal infection
  11. LINEZOLID [Suspect]
     Active Substance: LINEZOLID
     Indication: Pseudomonas infection
  12. LINEZOLID [Suspect]
     Active Substance: LINEZOLID
     Indication: Urinary tract infection bacterial
  13. LINEZOLID [Suspect]
     Active Substance: LINEZOLID
     Indication: Superinfection bacterial
  14. LINEZOLID [Suspect]
     Active Substance: LINEZOLID
     Indication: Meningitis bacterial
  15. BACLOFEN [Concomitant]
     Active Substance: BACLOFEN
     Indication: Product used for unknown indication
     Route: 065
  16. INSULIN NOS [Concomitant]
     Active Substance: INSULIN NOS
     Indication: Blood glucose increased
     Route: 065

REACTIONS (1)
  - Acute generalised exanthematous pustulosis [Unknown]
